FAERS Safety Report 8046503-2 (Version None)
Quarter: 2012Q1

REPORT INFORMATION
  Report Type: 
  Country: None (occurrence: None)
  Receive Date: 20120113
  Receipt Date: 20120109
  Transmission Date: 20120608
  Serious: Yes (Hospitalization, Other)
  Sender: FDA-Public Use
  Company Number: US-ASTRAZENECA-2012SE01730

PATIENT
  Age: 50 Year
  Sex: Female

DRUGS (1)
  1. SEROQUEL [Suspect]
     Route: 048

REACTIONS (4)
  - METASTASES TO CENTRAL NERVOUS SYSTEM [None]
  - BREAST CANCER STAGE IV [None]
  - METASTASES TO BONE [None]
  - METASTASES TO LIVER [None]
